FAERS Safety Report 9433824 (Version 2)
Quarter: 2013Q3

REPORT INFORMATION
  Report Type: Report from Study
  Country: VN (occurrence: VN)
  Receive Date: 20130731
  Receipt Date: 20130802
  Transmission Date: 20140515
  Serious: Yes (Hospitalization)
  Sender: FDA-Public Use
  Company Number: VN-ASTRAZENECA-2013SE50890

PATIENT
  Age: 28757 Day
  Sex: Male
  Weight: 70 kg

DRUGS (6)
  1. AZD6140 [Suspect]
     Indication: PERIPHERAL ARTERIAL OCCLUSIVE DISEASE
     Route: 048
     Dates: start: 20130621
  2. AMLODIPIN [Concomitant]
     Indication: HYPERTENSION
     Route: 048
     Dates: start: 20130509
  3. ATORVASTATIN [Concomitant]
     Route: 048
     Dates: start: 20130509
  4. ISOSORBIDE MONONITRATE [Concomitant]
     Dosage: 60 MG/CC DAILY
     Route: 048
     Dates: start: 20130509
  5. NEBIVILOL [Concomitant]
     Dosage: 1/4 TABLET
     Route: 048
     Dates: start: 20130609
  6. TELMISARTAN [Concomitant]
     Route: 048
     Dates: start: 20130609

REACTIONS (1)
  - Dyspnoea [Recovered/Resolved]
